FAERS Safety Report 19899327 (Version 1)
Quarter: 2021Q3

REPORT INFORMATION
  Report Type: Spontaneous
  Country: FR (occurrence: FR)
  Receive Date: 20210929
  Receipt Date: 20210929
  Transmission Date: 20211014
  Serious: Yes (Hospitalization, Other)
  Sender: FDA-Public Use
  Company Number: FR-MYLANLABS-2021M1066673

PATIENT
  Age: 61 Year
  Sex: Female
  Weight: 53 kg

DRUGS (2)
  1. MITOMYCINE [Suspect]
     Active Substance: MITOMYCIN
     Indication: ANAL CANCER
     Dosage: 10 MILLIGRAM/SQ. METER, TOTAL
     Route: 042
     Dates: start: 20210406, end: 20210406
  2. FLUOROURACIL. [Suspect]
     Active Substance: FLUOROURACIL
     Indication: ANAL CANCER
     Dosage: UNK
     Route: 065
     Dates: start: 20210406, end: 20210406

REACTIONS (7)
  - Asthenia [Unknown]
  - Febrile neutropenia [Not Recovered/Not Resolved]
  - Vomiting [Unknown]
  - Nausea [Not Recovered/Not Resolved]
  - Diarrhoea [Unknown]
  - Agranulocytosis [Unknown]
  - Decreased appetite [Not Recovered/Not Resolved]

NARRATIVE: CASE EVENT DATE: 2021
